FAERS Safety Report 24878674 (Version 1)
Quarter: 2025Q1

REPORT INFORMATION
  Report Type: Report from Study
  Country: CN (occurrence: CN)
  Receive Date: 20250123
  Receipt Date: 20250123
  Transmission Date: 20250409
  Serious: Yes (Other)
  Sender: TAKEDA
  Company Number: CN-TAKEDA-2025TUS005900

PATIENT

DRUGS (2)
  1. FRUQUINTINIB [Suspect]
     Active Substance: FRUQUINTINIB
     Indication: Colorectal cancer metastatic
  2. SINTILIMAB [Suspect]
     Active Substance: SINTILIMAB
     Indication: Colorectal cancer metastatic
     Dosage: 200 MILLIGRAM, Q3WEEKS

REACTIONS (1)
  - Colorectal cancer metastatic [Unknown]
